FAERS Safety Report 7258373-0 (Version None)
Quarter: 2011Q1

REPORT INFORMATION
  Report Type: 
  Country: None (occurrence: None)
  Receive Date: 20110129
  Receipt Date: 20100708
  Transmission Date: 20110831
  Serious: No
  Sender: FDA-Public Use
  Company Number: US-ABBOTT-10P-163-0656279-00

PATIENT
  Sex: Female
  Weight: 47.67 kg

DRUGS (4)
  1. ARAVA [Concomitant]
     Indication: RHEUMATOID ARTHRITIS
     Dates: start: 20030101
  2. HUMIRA [Suspect]
     Indication: RHEUMATOID ARTHRITIS
     Route: 058
     Dates: start: 20060101, end: 20090601
  3. PREDNISONE [Concomitant]
     Indication: RHEUMATOID ARTHRITIS
  4. NAPROSYN [Concomitant]
     Indication: RHEUMATOID ARTHRITIS

REACTIONS (7)
  - RESPIRATORY TRACT CONGESTION [None]
  - PLEURISY [None]
  - COUGH [None]
  - NASOPHARYNGITIS [None]
  - ASPERGILLOSIS [None]
  - ARTHRITIS [None]
  - HAEMOPTYSIS [None]
